FAERS Safety Report 11255368 (Version 2)
Quarter: 2015Q4

REPORT INFORMATION
  Report Type: Spontaneous
  Country: US (occurrence: US)
  Receive Date: 20150709
  Receipt Date: 20151008
  Transmission Date: 20160304
  Serious: Yes (Life-Threatening, Hospitalization, Disabling, Other)
  Sender: FDA-Public Use
  Company Number: US-GLAXOSMITHKLINE-US2015097889

PATIENT
  Age: 67 Year
  Sex: Female

DRUGS (4)
  1. POTIGA [Suspect]
     Active Substance: EZOGABINE
     Indication: AMYOTROPHIC LATERAL SCLEROSIS
     Dosage: 200 MG, TID
     Route: 048
  2. ALBUTEROL. [Concomitant]
     Active Substance: ALBUTEROL
  3. NUEDEXTA [Concomitant]
     Active Substance: DEXTROMETHORPHAN HYDROBROMIDE\QUINIDINE SULFATE
  4. RILUZOLE. [Concomitant]
     Active Substance: RILUZOLE

REACTIONS (7)
  - Upper airway obstruction [Unknown]
  - Endotracheal intubation [Unknown]
  - Wrong technique in product usage process [Not Recovered/Not Resolved]
  - Respiratory failure [Unknown]
  - Dyspnoea [Unknown]
  - Pneumonia aspiration [Recovered/Resolved]
  - Off label use [Not Recovered/Not Resolved]

NARRATIVE: CASE EVENT DATE: 20150625
